APPROVED DRUG PRODUCT: EVEROLIMUS
Active Ingredient: EVEROLIMUS
Strength: 5MG
Dosage Form/Route: TABLET;ORAL
Application: A207486 | Product #002 | TE Code: AB
Applicant: HIKMA PHARMACEUTICALS USA INC
Approved: Jun 8, 2020 | RLD: No | RS: No | Type: RX